FAERS Safety Report 7212996-3 (Version None)
Quarter: 2011Q1

REPORT INFORMATION
  Report Type: 
  Country: None (occurrence: None)
  Receive Date: 20110106
  Receipt Date: 20101220
  Transmission Date: 20110831
  Serious: Yes (Hospitalization, Congenital Anomaly)
  Sender: FDA-Public Use
  Company Number: A0902998A

PATIENT
  Sex: Female

DRUGS (3)
  1. PRENATAL VITAMINS [Concomitant]
  2. INSULIN [Concomitant]
  3. PAXIL [Suspect]
     Indication: ANXIETY
     Route: 048

REACTIONS (2)
  - PYLORIC STENOSIS [None]
  - DRUG EXPOSURE DURING PREGNANCY [None]
